FAERS Safety Report 7394843-2 (Version None)
Quarter: 2011Q2

REPORT INFORMATION
  Report Type: 
  Country: None (occurrence: None)
  Receive Date: 20110405
  Receipt Date: 20110329
  Transmission Date: 20111010
  Serious: Yes (Death, Life-Threatening, Hospitalization, Other)
  Sender: FDA-Public Use
  Company Number: A0903710A

PATIENT
  Age: 75 Year
  Sex: Female
  Weight: 63.6 kg

DRUGS (17)
  1. ADVAIR DISKUS 100/50 [Suspect]
     Indication: CHRONIC OBSTRUCTIVE PULMONARY DISEASE
     Dosage: 1PUFF TWICE PER DAY
     Route: 055
     Dates: start: 20080101
  2. PHENERGAN HCL [Concomitant]
  3. HYDROXYZINE [Concomitant]
  4. CARDIZEM [Concomitant]
  5. METHIMAZOLE [Concomitant]
  6. CLONAZEPAM [Concomitant]
  7. ATENOLOL [Concomitant]
  8. FOSAMAX [Concomitant]
  9. SERTRALINE HYDROCHLORIDE [Concomitant]
  10. VICODIN [Concomitant]
  11. ALBUTEROL [Concomitant]
  12. LOVASTATIN [Concomitant]
  13. OMEPRAZOLE [Concomitant]
  14. ZETIA [Concomitant]
  15. CELEBREX [Concomitant]
  16. OXYGEN [Concomitant]
  17. FUROSEMIDE [Concomitant]

REACTIONS (4)
  - BRAIN DEATH [None]
  - CARDIO-RESPIRATORY ARREST [None]
  - VITAL FUNCTIONS ABNORMAL [None]
  - RESPIRATORY ARREST [None]
